FAERS Safety Report 7602482-0 (Version None)
Quarter: 2011Q3

REPORT INFORMATION
  Report Type: 
  Country: None (occurrence: None)
  Receive Date: 20110712
  Receipt Date: 20110701
  Transmission Date: 20111222
  Serious: No
  Sender: FDA-Public Use
  Company Number: US-BIOGENIDEC-2011BI024411

PATIENT
  Age: 66 Year
  Sex: Female

DRUGS (3)
  1. COPAXONE [Concomitant]
     Indication: MULTIPLE SCLEROSIS
  2. REBIF [Concomitant]
     Indication: MULTIPLE SCLEROSIS
  3. AVONEX [Suspect]
     Indication: MULTIPLE SCLEROSIS
     Route: 030
     Dates: start: 20110612

REACTIONS (8)
  - THROAT TIGHTNESS [None]
  - HEAD TITUBATION [None]
  - MUSCLE SPASMS [None]
  - INSOMNIA [None]
  - TREMOR [None]
  - FEELING HOT [None]
  - ASTHENIA [None]
  - BURNING SENSATION [None]
